FAERS Safety Report 4524210-8 (Version None)
Quarter: 2004Q4

REPORT INFORMATION
  Report Type: 
  Country: None (occurrence: None)
  Receive Date: 20041119
  Receipt Date: 20040820
  Transmission Date: 20050328
  Serious: No
  Sender: FDA-Public Use
  Company Number: PHEH2004US07018

PATIENT
  Age: 58 Year
  Sex: Female

DRUGS (9)
  1. ZELNORM [Suspect]
     Indication: OESOPHAGEAL SPASM
     Dosage: ORAL
     Route: 048
     Dates: start: 20040628
  2. NEURONTIN [Concomitant]
  3. MOBIC [Concomitant]
  4. ACHIPHEX (RABEPRAZOLE SODIUM) [Concomitant]
  5. ULTRAM [Concomitant]
  6. BENTYL [Concomitant]
  7. KLONOPIN [Concomitant]
  8. TYLENOL PM [Concomitant]
  9. PRILOSEC (OMERAZOLE) [Concomitant]

REACTIONS (5)
  - CONSTIPATION [None]
  - EYELID DISORDER [None]
  - OEDEMA [None]
  - STOMATITIS [None]
  - WEIGHT INCREASED [None]
